FAERS Safety Report 20552062 (Version 2)
Quarter: 2022Q2

REPORT INFORMATION
  Report Type: Spontaneous
  Country: US (occurrence: US)
  Receive Date: 20220304
  Receipt Date: 20220416
  Transmission Date: 20220721
  Serious: Yes (Hospitalization, Other)
  Sender: FDA-Public Use
  Company Number: US-AMGEN-USASP2022033832

PATIENT
  Age: 74 Year
  Sex: Female
  Weight: 67.12 kg

DRUGS (1)
  1. PROLIA [Suspect]
     Active Substance: DENOSUMAB
     Indication: Osteoporosis postmenopausal
     Dosage: 60 MILLIGRAM, Q6MO
     Route: 058
     Dates: start: 20210830

REACTIONS (5)
  - Femur fracture [Unknown]
  - Facial bones fracture [Unknown]
  - Fall [Unknown]
  - Concussion [Unknown]
  - Epistaxis [Unknown]

NARRATIVE: CASE EVENT DATE: 20220216
